FAERS Safety Report 11092561 (Version 1)
Quarter: 2015Q2

REPORT INFORMATION
  Report Type: Spontaneous
  Country: US (occurrence: None)
  Receive Date: 20150505
  Receipt Date: 20150505
  Transmission Date: 20150821
  Serious: No
  Sender: FDA-Public Use
  Company Number: None

PATIENT
  Age: 42 Year
  Sex: Female
  Weight: 68.04 kg

DRUGS (4)
  1. FLONASE [Suspect]
     Active Substance: FLUTICASONE PROPIONATE
     Indication: SEASONAL ALLERGY
     Dosage: 1 SPRAY EACH NOSTRAL, TWICE DAILY, NASAL SPRAY
     Route: 045
     Dates: start: 20150427, end: 20150501
  2. PROZAC [Concomitant]
     Active Substance: FLUOXETINE HYDROCHLORIDE
  3. MULTI VITAMIN [Concomitant]
     Active Substance: VITAMINS
  4. XANAX [Concomitant]
     Active Substance: ALPRAZOLAM

REACTIONS (14)
  - Ageusia [None]
  - Menstrual disorder [None]
  - Swelling face [None]
  - Eye swelling [None]
  - Facial pain [None]
  - Eye pain [None]
  - Headache [None]
  - Nausea [None]
  - Lacrimation decreased [None]
  - Metrorrhagia [None]
  - Rash [None]
  - Anosmia [None]
  - Libido decreased [None]
  - Urticaria [None]

NARRATIVE: CASE EVENT DATE: 20150426
